FAERS Safety Report 5601613-1 (Version None)
Quarter: 2008Q1

REPORT INFORMATION
  Report Type: 
  Country: None (occurrence: None)
  Receive Date: 20080124
  Receipt Date: 20080114
  Transmission Date: 20080703
  Serious: Yes (Hospitalization)
  Sender: FDA-Public Use
  Company Number: FR-SANOFI-SYNTHELABO-A02200800231

PATIENT
  Age: 75 Year
  Sex: Male
  Weight: 86.5 kg

DRUGS (7)
  1. DOLIPRANE [Concomitant]
     Indication: PAIN
     Route: 048
  2. AMLOR [Concomitant]
     Indication: HYPERTENSION
     Route: 048
  3. ATACAND [Concomitant]
     Indication: HYPERTENSION
     Route: 048
     Dates: end: 20070711
  4. NEURONTIN [Concomitant]
     Indication: NEURALGIA
     Route: 048
     Dates: start: 20070709
  5. LAROXYL [Interacting]
     Indication: NEURALGIA
     Route: 048
     Dates: start: 20070709
  6. ANAFRANIL [Interacting]
     Indication: NEURALGIA
     Route: 048
     Dates: start: 20070709, end: 20070711
  7. STILNOX [Suspect]
     Indication: INSOMNIA
     Route: 048
     Dates: end: 20070711

REACTIONS (5)
  - ASTHENIA [None]
  - CONFUSIONAL STATE [None]
  - DEHYDRATION [None]
  - DRUG INTERACTION [None]
  - RENAL FAILURE ACUTE [None]
